FAERS Safety Report 19003639 (Version 1)
Quarter: 2021Q1

REPORT INFORMATION
  Report Type: Spontaneous
  Country: DE (occurrence: DE)
  Receive Date: 20210312
  Receipt Date: 20210312
  Transmission Date: 20210420
  Serious: Yes (Hospitalization, Other)
  Sender: FDA-Public Use
  Company Number: DE-AMGEN-DEUSP2021035680

PATIENT
  Age: 88 Year
  Sex: Female

DRUGS (1)
  1. PROLIA [Suspect]
     Active Substance: DENOSUMAB
     Indication: OSTEOPOROSIS
     Dosage: UNK,
     Route: 065

REACTIONS (6)
  - Sepsis [Unknown]
  - Phlebitis [Unknown]
  - Plasma cell myeloma [Unknown]
  - Hypercalcaemia [Unknown]
  - Abdominal pain [Unknown]
  - Pneumonia [Unknown]
